FAERS Safety Report 16551766 (Version 1)
Quarter: 2019Q3

REPORT INFORMATION
  Report Type: Spontaneous
  Country: BR (occurrence: BR)
  Receive Date: 20190710
  Receipt Date: 20190710
  Transmission Date: 20191004
  Serious: Yes (Death, Hospitalization, Other)
  Sender: FDA-Public Use
  Company Number: BR-PFIZER INC-2019289312

PATIENT
  Age: 53 Year
  Sex: Male

DRUGS (1)
  1. SUTENT [Suspect]
     Active Substance: SUNITINIB MALATE
     Dosage: UNK
     Dates: end: 20190630

REACTIONS (18)
  - Death [Fatal]
  - Skin discolouration [Unknown]
  - Diplopia [Unknown]
  - Facial paralysis [Unknown]
  - Renal failure [Unknown]
  - Seizure [Unknown]
  - Strabismus [Unknown]
  - Ear swelling [Unknown]
  - Coma [Unknown]
  - Vomiting [Unknown]
  - Movement disorder [Unknown]
  - Eye swelling [Unknown]
  - Pneumonia [Unknown]
  - Multiple organ dysfunction syndrome [Unknown]
  - Dyspnoea [Unknown]
  - Neoplasm progression [Unknown]
  - Ear infection [Unknown]
  - Swelling [Unknown]

NARRATIVE: CASE EVENT DATE: 20190620
